FAERS Safety Report 5233033-6 (Version None)
Quarter: 2007Q1

REPORT INFORMATION
  Report Type: 
  Country: None (occurrence: None)
  Receive Date: 20070207
  Receipt Date: 20070130
  Transmission Date: 20070707
  Serious: Yes (Hospitalization, Disabling, Other)
  Sender: FDA-Public Use
  Company Number: JP-PFIZER INC-2006153565

PATIENT
  Sex: Male

DRUGS (9)
  1. LIPITOR [Suspect]
     Indication: HYPERCHOLESTEROLAEMIA
     Route: 048
     Dates: start: 20011205, end: 20061121
  2. NOVOLIN N [Concomitant]
     Indication: DIABETES MELLITUS
     Route: 058
  3. NOVORAPID [Concomitant]
  4. NORVASC [Concomitant]
     Indication: HYPERTENSION
     Dosage: DAILY DOSE:5MG
     Route: 048
  5. ALLOPURINOL SODIUM [Concomitant]
     Indication: HYPERURICAEMIA
     Route: 048
  6. LASIX [Concomitant]
     Indication: CARDIAC FAILURE
     Dosage: DAILY DOSE:40MG
     Route: 048
     Dates: start: 20050320
  7. ACEMAIL [Concomitant]
     Indication: HYPERTENSION
     Dosage: DAILY DOSE:20MG
     Route: 048
     Dates: start: 20041101
  8. MICARDIS [Concomitant]
     Indication: HYPERTENSION
     Dosage: DAILY DOSE:80MG
     Route: 048
  9. HUMALOG [Concomitant]
     Indication: DIABETES MELLITUS
     Dosage: TEXT:52 UNITS
     Route: 058
     Dates: start: 20030106

REACTIONS (3)
  - CARDIAC FAILURE CONGESTIVE [None]
  - HYPERURICAEMIA [None]
  - RHABDOMYOLYSIS [None]
